FAERS Safety Report 18709556 (Version 4)
Quarter: 2021Q2

REPORT INFORMATION
  Report Type: Spontaneous
  Country: US (occurrence: US)
  Receive Date: 20210107
  Receipt Date: 20210624
  Transmission Date: 20210717
  Serious: Yes (Hospitalization)
  Sender: FDA-Public Use
  Company Number: US-SA-2021SA001763

PATIENT
  Age: 21 Year
  Sex: Male
  Weight: 50.7 kg

DRUGS (15)
  1. LMX4 [Concomitant]
     Active Substance: LIDOCAINE
  2. PULMICORT TURBUHALER [Concomitant]
     Active Substance: BUDESONIDE
  3. INDOCIN [Concomitant]
     Active Substance: INDOMETHACIN
  4. MIRALAX [Concomitant]
     Active Substance: POLYETHYLENE GLYCOL 3350
  5. NORMAL SALINE [Concomitant]
     Active Substance: SODIUM CHLORIDE
  6. EPINEPHRINE. [Concomitant]
     Active Substance: EPINEPHRINE
  7. SERTRALINE [Concomitant]
     Active Substance: SERTRALINE HYDROCHLORIDE
  8. ALDURAZYME [Suspect]
     Active Substance: LARONIDASE
     Dosage: 29 MG, QW
     Route: 042
     Dates: start: 2021
  9. HEPARIN [Concomitant]
     Active Substance: HEPARIN SODIUM
  10. BACLOFEN. [Concomitant]
     Active Substance: BACLOFEN
  11. PROAIR [FLUTICASONE PROPIONATE] [Concomitant]
     Active Substance: FLUTICASONE PROPIONATE
  12. ALDURAZYME [Suspect]
     Active Substance: LARONIDASE
     Indication: MUCOPOLYSACCHARIDOSIS I
     Dosage: 29 MG, QW
     Route: 042
     Dates: start: 20190424, end: 202104
  13. OXYGEN. [Concomitant]
     Active Substance: OXYGEN
  14. DIPHENHYDRAMINE. [Concomitant]
     Active Substance: DIPHENHYDRAMINE
  15. NASONEX [Concomitant]
     Active Substance: MOMETASONE FUROATE

REACTIONS (4)
  - Infection [Unknown]
  - Arthralgia [Unknown]
  - Ear disorder [Unknown]
  - Hyperreflexia [Unknown]

NARRATIVE: CASE EVENT DATE: 202104
